FAERS Safety Report 9933229 (Version 2)
Quarter: 2014Q1

REPORT INFORMATION
  Report Type: Report from Study
  Country: US (occurrence: US)
  Receive Date: 20140228
  Receipt Date: 20140228
  Transmission Date: 20141002
  Serious: No
  Sender: FDA-Public Use
  Company Number: US-MYLANLABS-2013S1000914

PATIENT
  Age: 31 Year
  Sex: Female
  Weight: 57.15 kg

DRUGS (2)
  1. AMNESTEEM CAPSULES [Suspect]
     Indication: ACNE
     Route: 048
     Dates: start: 20121022, end: 20130109
  2. WELLBUTRIN [Suspect]
     Indication: LIBIDO DECREASED
     Route: 048
     Dates: start: 20130104, end: 20130109

REACTIONS (2)
  - Affect lability [Recovered/Resolved]
  - Tearfulness [Recovered/Resolved]
